FAERS Safety Report 5019494-6 (Version None)
Quarter: 2006Q2

REPORT INFORMATION
  Report Type: 
  Country: None (occurrence: None)
  Receive Date: 20060605
  Receipt Date: 20060605
  Transmission Date: 20061013
  Serious: Yes (Death, Life-Threatening, Hospitalization, Other)
  Sender: FDA-Public Use
  Company Number: None

PATIENT
  Age: 79 Year
  Sex: Female
  Weight: 72.5755 kg

DRUGS (1)
  1. WARFARIN SODIUM [Suspect]
     Dosage: 1 BEDTIME PO
     Route: 048
     Dates: start: 20060306, end: 20060403

REACTIONS (9)
  - ASTHENIA [None]
  - COAGULOPATHY [None]
  - CONFUSIONAL STATE [None]
  - CONTUSION [None]
  - DRUG THERAPEUTIC INCOMPATIBILITY [None]
  - JAUNDICE [None]
  - LIVER FUNCTION TEST ABNORMAL [None]
  - NAUSEA [None]
  - OEDEMA PERIPHERAL [None]
